FAERS Safety Report 10243639 (Version 1)
Quarter: 2014Q2

REPORT INFORMATION
  Report Type: Spontaneous
  Country: US (occurrence: US)
  Receive Date: 20140618
  Receipt Date: 20140618
  Transmission Date: 20141212
  Serious: No
  Sender: FDA-Public Use
  Company Number: US-PFIZER INC-2014163156

PATIENT
  Sex: Female

DRUGS (2)
  1. EFFEXOR XR [Suspect]
     Dosage: UNK
  2. EFFEXOR XR [Suspect]
     Dosage: 37.5 MG, UNK

REACTIONS (5)
  - Tearfulness [Unknown]
  - Impatience [Unknown]
  - Irritability [Unknown]
  - Depression [Unknown]
  - Drug withdrawal syndrome [Unknown]
